FAERS Safety Report 4282462-6 (Version None)
Quarter: 2004Q1

REPORT INFORMATION
  Report Type: 
  Country: None (occurrence: None)
  Receive Date: 20040120
  Receipt Date: 20031024
  Transmission Date: 20041129
  Serious: No
  Sender: FDA-Public Use
  Company Number: 03P-163-0238707-00

PATIENT
  Sex: 0

DRUGS (1)
  1. OMNICEF [Suspect]

REACTIONS (2)
  - ANAPHYLACTIC REACTION [None]
  - JOINT SWELLING [None]
